FAERS Safety Report 7409594-5 (Version None)
Quarter: 2011Q2

REPORT INFORMATION
  Report Type: 
  Country: None (occurrence: None)
  Receive Date: 20110412
  Receipt Date: 20110307
  Transmission Date: 20111010
  Serious: Yes (Hospitalization, Other)
  Sender: FDA-Public Use
  Company Number: US-BAYER-201021261NA

PATIENT
  Age: 20 Year
  Sex: Female
  Weight: 59.091 kg

DRUGS (19)
  1. PROMETHAZINE [Concomitant]
  2. YAZ [Suspect]
     Indication: DYSMENORRHOEA
     Route: 048
     Dates: start: 20060701, end: 20071208
  3. PHENERGAN HCL [Concomitant]
  4. LIDOCAINE HCL VISCOUS [Concomitant]
     Route: 048
  5. YAZ [Suspect]
     Indication: ENDOMETRIOSIS
  6. ACYCLOVIR [Concomitant]
  7. NASONEX [Concomitant]
  8. ZYRTEC [Concomitant]
     Indication: SEASONAL ALLERGY
     Dates: start: 20000101
  9. AZITHROMYCIN [Concomitant]
  10. CARAFATE [Concomitant]
  11. PROMETHEGAN [Concomitant]
  12. FIORICET [Concomitant]
  13. PREVACID [Concomitant]
  14. LEVAQUIN [Concomitant]
  15. PSEUDOVENT [Concomitant]
  16. ADVIL LIQUI-GELS [Concomitant]
  17. YAZ [Suspect]
     Indication: PREMENSTRUAL SYNDROME
  18. CLARITIN-D [Concomitant]
     Indication: SEASONAL ALLERGY
     Dates: start: 20000101
  19. NARINE [Concomitant]
     Dates: start: 20000101

REACTIONS (5)
  - DYSPNOEA [None]
  - MUSCULOSKELETAL PAIN [None]
  - PULMONARY EMBOLISM [None]
  - CHEST PAIN [None]
  - BACK PAIN [None]
